FAERS Safety Report 19535607 (Version 1)
Quarter: 2021Q3

REPORT INFORMATION
  Report Type: Report from Study
  Country: None (occurrence: BR)
  Receive Date: 20210713
  Receipt Date: 20210713
  Transmission Date: 20211014
  Serious: Yes (Other)
  Sender: FDA-Public Use
  Company Number: BR-ABBVIE-21P-020-3859483-00

PATIENT
  Sex: Female
  Weight: 57 kg

DRUGS (8)
  1. OLANZAPINE. [Concomitant]
     Active Substance: OLANZAPINE
     Indication: SCHIZOPHRENIA
     Dosage: DAILY DOSE: ADMINISTERS 1 TABLET IN THE MORNING AND 2 TABLETS AT NIGHT
     Route: 048
     Dates: start: 2019
  2. DEPAKOTE ER [Suspect]
     Active Substance: DIVALPROEX SODIUM
     Indication: SCHIZOPHRENIA
  3. AZATHIOPRINE. [Concomitant]
     Active Substance: AZATHIOPRINE
     Indication: BEHCET^S SYNDROME
     Dosage: DAILY DOSE: ADMINISTERED IN THE MORNING AND AT NIGHT
     Route: 048
     Dates: start: 2017
  4. LAMOTRIGINE. [Concomitant]
     Active Substance: LAMOTRIGINE
     Indication: SCHIZOPHRENIA
     Dosage: DAILY DOSE: ADMINISTERED IN THE MORNING AND AT NIGHT
     Route: 048
     Dates: start: 2018
  5. DEPAKOTE ER [Suspect]
     Active Substance: DIVALPROEX SODIUM
     Indication: AUTISM SPECTRUM DISORDER
  6. DEPAKOTE ER [Suspect]
     Active Substance: DIVALPROEX SODIUM
     Indication: BEHCET^S SYNDROME
  7. DEPAKOTE ER [Suspect]
     Active Substance: DIVALPROEX SODIUM
     Indication: EPILEPSY
     Dosage: DAILY DOSE: ADMINISTERED IN THE MORNING AND AT NIGHT
     Route: 048
  8. COLCHICINE. [Concomitant]
     Active Substance: COLCHICINE
     Indication: PRODUCT USED FOR UNKNOWN INDICATION

REACTIONS (4)
  - Seizure [Unknown]
  - Product use issue [Unknown]
  - Electroencephalogram abnormal [Unknown]
  - Product use in unapproved indication [Unknown]
